FAERS Safety Report 9736020 (Version 2)
Quarter: 2013Q4

REPORT INFORMATION
  Report Type: Report from Study
  Country: CA (occurrence: CA)
  Receive Date: 20131206
  Receipt Date: 20131231
  Transmission Date: 20140711
  Serious: Yes (Other)
  Sender: FDA-Public Use
  Company Number: CA-JNJFOC-20131200580

PATIENT
  Age: 80 Year
  Sex: Female
  Weight: 50.8 kg

DRUGS (10)
  1. REMICADE [Suspect]
     Indication: RHEUMATOID ARTHRITIS
     Route: 042
     Dates: start: 20100506
  2. FOSAMAX [Concomitant]
     Route: 065
  3. METHOTREXATE [Concomitant]
     Route: 065
  4. FOLIC ACID [Concomitant]
     Route: 065
  5. VITAMIN D [Concomitant]
     Route: 065
  6. CALCIUM [Concomitant]
     Route: 065
  7. ACETYLSALICYLIC ACID [Concomitant]
     Route: 065
  8. TYLENOL [Concomitant]
     Route: 065
  9. COSOPT [Concomitant]
     Route: 065
  10. IRON [Concomitant]
     Route: 065

REACTIONS (1)
  - Cataract [Recovered/Resolved]
